FAERS Safety Report 15610784 (Version 1)
Quarter: 2018Q4

REPORT INFORMATION
  Report Type: Spontaneous
  Country: US (occurrence: US)
  Receive Date: 20181113
  Receipt Date: 20181113
  Transmission Date: 20190205
  Serious: No
  Sender: FDA-Public Use
  Company Number: US-ROCHE-2112117

PATIENT
  Sex: Female
  Weight: 56.75 kg

DRUGS (3)
  1. PERJETA [Suspect]
     Active Substance: PERTUZUMAB
     Indication: HER-2 POSITIVE BREAST CANCER
     Dosage: EVERY 3 WEEKS ;ONGOING: YES
     Route: 042
     Dates: start: 20171027
  2. HERCEPTIN [Suspect]
     Active Substance: TRASTUZUMAB
     Indication: HER-2 POSITIVE BREAST CANCER
     Dosage: EVERY 3 WEEKS ;ONGOING: YES
     Route: 042
     Dates: start: 20171027
  3. PACLITAXEL. [Suspect]
     Active Substance: PACLITAXEL
     Indication: HER-2 POSITIVE BREAST CANCER
     Dosage: EVERY WEEK FOR 12 WEEKS ;ONGOING: NO
     Route: 042
     Dates: start: 20171027, end: 201801

REACTIONS (1)
  - Neuropathy peripheral [Not Recovered/Not Resolved]
